FAERS Safety Report 10990659 (Version 3)
Quarter: 2015Q2

REPORT INFORMATION
  Report Type: Spontaneous
  Country: US (occurrence: US)
  Receive Date: 20150406
  Receipt Date: 20150616
  Transmission Date: 20150821
  Serious: No
  Sender: FDA-Public Use
  Company Number: US-PFIZER INC-2015115212

PATIENT
  Age: 72 Year
  Sex: Male
  Weight: 75 kg

DRUGS (7)
  1. COQ 10 [Concomitant]
     Active Substance: UBIDECARENONE
     Dosage: 100 MG, UNK
     Dates: start: 201505
  2. ASPIRIN. [Concomitant]
     Active Substance: ASPIRIN
     Indication: CORONARY ARTERY DISEASE
     Dosage: 1 DF, DAILY
     Route: 048
     Dates: start: 20000816
  3. LIPITOR [Suspect]
     Active Substance: ATORVASTATIN CALCIUM
     Indication: DYSLIPIDAEMIA
     Dosage: 10 MG, UNK
     Route: 048
     Dates: start: 20000816, end: 20150302
  4. LIPITOR [Suspect]
     Active Substance: ATORVASTATIN CALCIUM
     Indication: CORONARY ARTERY DISEASE
     Dosage: 10 MG, 1X/DAY
     Dates: start: 1999
  5. METOPROLOL TARTRATE. [Concomitant]
     Active Substance: METOPROLOL TARTRATE
     Indication: CORONARY ARTERY DISEASE
     Dosage: 50 MG, 2X/DAY
     Dates: start: 20000816
  6. VITAMIN C [Concomitant]
     Active Substance: ASCORBIC ACID
     Dosage: 1 DF, DAILY
     Route: 048
     Dates: start: 1995
  7. GLUCOSAMINE CHONDROITIN PM [Concomitant]
     Indication: ARTHRITIS
     Dosage: 2 DF, DAILY
     Route: 048
     Dates: start: 1999

REACTIONS (9)
  - Balance disorder [Not Recovered/Not Resolved]
  - Muscular weakness [Not Recovered/Not Resolved]
  - Gastroenteritis viral [Recovered/Resolved]
  - Myalgia [Recovering/Resolving]
  - Pain [Not Recovered/Not Resolved]
  - Fatigue [Recovered/Resolved]
  - Gait disturbance [Not Recovered/Not Resolved]
  - Musculoskeletal pain [Not Recovered/Not Resolved]
  - Weight decreased [Unknown]

NARRATIVE: CASE EVENT DATE: 201410
